FAERS Safety Report 18380518 (Version 2)
Quarter: 2020Q4

REPORT INFORMATION
  Report Type: Report from Study
  Country: FR (occurrence: FR)
  Receive Date: 20201013
  Receipt Date: 20201016
  Transmission Date: 20210114
  Serious: Yes (Hospitalization)
  Sender: FDA-Public Use
  Company Number: FR-ROCHE-2690711

PATIENT
  Age: 56 Year
  Sex: Female

DRUGS (24)
  1. LASILIX [Concomitant]
     Active Substance: FUROSEMIDE
     Dosage: 40 MG 1/2 TABLET IN THE MORNING
  2. KETAMINE [Concomitant]
     Active Substance: KETAMINE
  3. PROPOFOL. [Concomitant]
     Active Substance: PROPOFOL
  4. LANTUS [Concomitant]
     Active Substance: INSULIN GLARGINE
     Dosage: 14 UNITS IN THE EVENING
  5. ATACAND [Concomitant]
     Active Substance: CANDESARTAN CILEXETIL
     Dosage: 8 MG MORNING AND EVENING SHE WILL NOT TAKE AT EVENING AND MORNING OF THE INTERVENTION
  6. CEFAZOLIN [Concomitant]
     Active Substance: CEFAZOLIN
  7. HYDROCORTISONE. [Concomitant]
     Active Substance: HYDROCORTISONE
  8. VERSATIS [Concomitant]
     Active Substance: LIDOCAINE
     Dosage: VERSATIS LIDOCAINE PATCH ON THE CHEST AND BACK
  9. TRAMADOL. [Concomitant]
     Active Substance: TRAMADOL
     Dosage: 50 2 COMP./DAY
  10. ATRACURIUM [Concomitant]
     Active Substance: ATRACURIUM
  11. KETAMINE [Concomitant]
     Active Substance: KETAMINE
  12. DULAGLUTIDE. [Concomitant]
     Active Substance: DULAGLUTIDE
  13. EPHEDRINE. [Concomitant]
     Active Substance: EPHEDRINE
  14. LIDOCAINE. [Concomitant]
     Active Substance: LIDOCAINE
  15. ATEZOLIZUMAB. [Suspect]
     Active Substance: ATEZOLIZUMAB
     Indication: METASTATIC NEOPLASM
     Dosage: ATEZOLIZUMAB CYCLE 5 D1: 1200 MG ON 27-JUL-2020 (LAST DOSE)
     Route: 041
     Dates: start: 20200727
  16. TRAMADOL. [Concomitant]
     Active Substance: TRAMADOL
     Dosage: 100 LP 2 COMP./DAY
  17. DOLIPRANE [Concomitant]
     Active Substance: ACETAMINOPHEN
  18. KREDEX [Concomitant]
     Active Substance: CARVEDILOL
     Dosage: 25 MG MORNING AND EVENING
  19. INEXIUM [Concomitant]
     Active Substance: ESOMEPRAZOLE
     Dosage: 1 CAPSULE IN THE EVENING
  20. DEXAMETHASONE. [Concomitant]
     Active Substance: DEXAMETHASONE
  21. MORPHINE [Concomitant]
     Active Substance: MORPHINE
  22. KETOPROFEN. [Concomitant]
     Active Substance: KETOPROFEN
  23. PREDNISONE. [Concomitant]
     Active Substance: PREDNISONE
     Dosage: 20 MG IN THE MORNING
  24. REMIFENTANIL [Concomitant]
     Active Substance: REMIFENTANIL

REACTIONS (1)
  - Metastases to bone [Unknown]

NARRATIVE: CASE EVENT DATE: 20200913
